FAERS Safety Report 10083801 (Version 4)
Quarter: 2014Q2

REPORT INFORMATION
  Report Type: Spontaneous
  Country: JP (occurrence: JP)
  Receive Date: 20140417
  Receipt Date: 20140610
  Transmission Date: 20141212
  Serious: Yes (Hospitalization)
  Sender: FDA-Public Use
  Company Number: PHHY2011JP81380

PATIENT
  Age: 69 Year
  Sex: Male

DRUGS (3)
  1. TASIGNA [Suspect]
     Indication: CHRONIC MYELOID LEUKAEMIA
     Dosage: 800 MG, DAILY
     Route: 048
     Dates: start: 2011, end: 2011
  2. TASIGNA [Suspect]
     Dosage: 400 MG, DAILY
     Route: 048
     Dates: start: 20110406, end: 2011
  3. TASIGNA [Suspect]
     Route: 048

REACTIONS (3)
  - Angina pectoris [Unknown]
  - Gynaecomastia [Recovering/Resolving]
  - Hyperglycaemia [Recovering/Resolving]
